FAERS Safety Report 14101048 (Version 6)
Quarter: 2018Q1

REPORT INFORMATION
  Report Type: Report from Study
  Country: None (occurrence: CN)
  Receive Date: 20171018
  Receipt Date: 20180130
  Transmission Date: 20180508
  Serious: Yes (Hospitalization, Other)
  Sender: FDA-Public Use
  Company Number: CN-ABBVIE-17K-035-2107255-00

PATIENT
  Age: 33 Year
  Sex: Male

DRUGS (2)
  1. IMRECOXIB [Concomitant]
     Indication: ANKYLOSING SPONDYLITIS
     Route: 048
     Dates: start: 20170525
  2. HUMIRA [Suspect]
     Active Substance: ADALIMUMAB
     Indication: ANKYLOSING SPONDYLITIS
     Route: 058
     Dates: start: 201704, end: 20170821

REACTIONS (11)
  - Large intestine polyp [Unknown]
  - Spleen tuberculosis [Recovering/Resolving]
  - Pleural effusion [Recovered/Resolved]
  - Pulmonary tuberculosis [Recovering/Resolving]
  - Lymph node tuberculosis [Recovering/Resolving]
  - White blood cell count decreased [Unknown]
  - Haemorrhoids [Unknown]
  - Pain [Unknown]
  - Neoplasm [Unknown]
  - Tuberculosis gastrointestinal [Recovered/Resolved]
  - Ankylosing spondylitis [Unknown]

NARRATIVE: CASE EVENT DATE: 201708
